FAERS Safety Report 7560736-0 (Version None)
Quarter: 2011Q2

REPORT INFORMATION
  Report Type: 
  Country: None (occurrence: None)
  Receive Date: 20110621
  Receipt Date: 20110617
  Transmission Date: 20111010
  Serious: Yes (Other)
  Sender: FDA-Public Use
  Company Number: GB-TEVA-266898ISR

PATIENT
  Age: 66 Year
  Sex: Male
  Weight: 72.3 kg

DRUGS (1)
  1. CITALOPRAM HYDROBROMIDE [Suspect]
     Indication: DEPRESSION
     Dates: start: 20100924, end: 20110117

REACTIONS (1)
  - SOMNAMBULISM [None]
